FAERS Safety Report 6075606-7 (Version None)
Quarter: 2009Q1

REPORT INFORMATION
  Report Type: 
  Country: None (occurrence: None)
  Receive Date: 20090210
  Receipt Date: 20090203
  Transmission Date: 20090719
  Serious: Yes (Death, Hospitalization)
  Sender: FDA-Public Use
  Company Number: 2009JP000463

PATIENT
  Age: 36 Year
  Sex: Male

DRUGS (7)
  1. PROGRAF [Suspect]
     Indication: STEM CELL TRANSPLANT
     Dosage: UNK, UNKNOWN/D, UNKNOWN
  2. CYCLOPHOSPHAMIDE (CYCLOPHOSPHAMIDE) FORMULATION UNKNOWN [Concomitant]
  3. CYCLOSPORINE [Concomitant]
  4. MTHOTREXATE FORMULATION UNKNOWN [Concomitant]
  5. PREDNISOLONE [Concomitant]
  6. PIRARUBICIN (PIRARUBICIN HYDROCHLORIDE) FORMULATION UNKNOWN [Concomitant]
  7. VINCRISTINE (VINCRISTINE SULFATE) FORMULATION UNKNOWN [Concomitant]

REACTIONS (5)
  - CHRONIC GRAFT VERSUS HOST DISEASE [None]
  - CYTOMEGALOVIRUS INFECTION [None]
  - FUNGAL INFECTION [None]
  - PNEUMONIA ASPIRATION [None]
  - RESPIRATORY FAILURE [None]
